FAERS Safety Report 5243905-4 (Version None)
Quarter: 2007Q1

REPORT INFORMATION
  Report Type: 
  Country: None (occurrence: None)
  Receive Date: 20070222
  Receipt Date: 20070208
  Transmission Date: 20070707
  Serious: Yes (Hospitalization)
  Sender: FDA-Public Use
  Company Number: PHEH2007US01870

PATIENT
  Age: 44 Year
  Sex: Male

DRUGS (17)
  1. LOSARTAN POTASSIUM [Concomitant]
     Dosage: 50MG, UNK
  2. SIMVASTATIN [Concomitant]
     Dosage: 40 MG, UNK
  3. TRAZODONE HCL [Concomitant]
     Dosage: 100 MG QHS, PRN
  4. GEODON [Concomitant]
     Dosage: 20 MG, ONCE/SINGLE
     Route: 030
     Dates: start: 20061217, end: 20061217
  5. GEODON [Concomitant]
     Dosage: 20 MG, QD
     Route: 048
     Dates: start: 20061217, end: 20061218
  6. CLOZAPINE [Suspect]
     Indication: SCHIZOPHRENIA
     Dates: start: 20061129
  7. CLOZAPINE [Suspect]
     Dates: start: 20061218, end: 20061222
  8. HALOPERIDOL DECANOATE [Suspect]
     Indication: SCHIZOPHRENIA
     Dosage: 100MG, UNK
  9. COGENTIN [Concomitant]
     Dosage: 1 MG, BID
  10. LEXAPRO [Concomitant]
     Indication: DEPRESSION
     Dosage: 20 MG, UNK
  11. FELODIPINE [Concomitant]
     Indication: HYPERTENSION
     Dosage: 10 MG, UNK
  12. GLIPIZIDE [Concomitant]
     Indication: DIABETES MELLITUS NON-INSULIN-DEPENDENT
     Dosage: 5 MG, UNK
  13. LEVOTHYROXINE SODIUM [Concomitant]
     Indication: HYPOTHYROIDISM
     Dosage: 100 MCG, UNK
  14. ATIVAN [Concomitant]
     Dosage: 1 MG, TID
  15. CLOZARIL [Suspect]
     Indication: SCHIZOPHRENIA
     Dates: start: 20061129
  16. CLOZARIL [Suspect]
     Dates: start: 20061218, end: 20061222
  17. CLOZARIL [Suspect]
     Dosage: UNK, UNK

REACTIONS (8)
  - ABNORMAL BEHAVIOUR [None]
  - AGGRESSION [None]
  - AKATHISIA [None]
  - GRANULOCYTOPENIA [None]
  - NEUTROPHIL COUNT DECREASED [None]
  - PARANOIA [None]
  - SEDATION [None]
  - WHITE BLOOD CELL COUNT DECREASED [None]
